FAERS Safety Report 8238060-2 (Version None)
Quarter: 2012Q1

REPORT INFORMATION
  Report Type: 
  Country: None (occurrence: None)
  Receive Date: 20120327
  Receipt Date: 20120320
  Transmission Date: 20120608
  Serious: Yes (Hospitalization)
  Sender: FDA-Public Use
  Company Number: US-GLAXOSMITHKLINE-A0970530A

PATIENT
  Sex: Female

DRUGS (2)
  1. VIMPAT [Concomitant]
  2. LAMICTAL [Suspect]
     Indication: PARTIAL SEIZURES
     Dosage: 200MG PER DAY
     Route: 048
     Dates: start: 20110901, end: 20110101

REACTIONS (4)
  - PERICARDITIS [None]
  - CONVULSION [None]
  - FATIGUE [None]
  - PHOTOPHOBIA [None]
